FAERS Safety Report 5908681-8 (Version None)
Quarter: 2008Q4

REPORT INFORMATION
  Report Type: 
  Country: None (occurrence: None)
  Receive Date: 20081006
  Receipt Date: 20080926
  Transmission Date: 20090506
  Serious: Yes (Hospitalization)
  Sender: FDA-Public Use
  Company Number: A0730277A

PATIENT
  Age: 63 Year
  Sex: Male
  Weight: 106.8 kg

DRUGS (4)
  1. AVANDIA [Suspect]
     Dosage: 4MG TWICE PER DAY
     Route: 048
     Dates: start: 20030501, end: 20070326
  2. AVANDAMET [Suspect]
     Route: 065
  3. ACTOS [Concomitant]
  4. AMARYL [Concomitant]

REACTIONS (1)
  - MYOCARDIAL INFARCTION [None]
